FAERS Safety Report 13602303 (Version 1)
Quarter: 2017Q2

REPORT INFORMATION
  Report Type: Spontaneous
  Country: US (occurrence: US)
  Receive Date: 20170601
  Receipt Date: 20170601
  Transmission Date: 20170830
  Serious: Yes (Hospitalization)
  Sender: FDA-Public Use
  Company Number: US-PFIZER INC-2951184

PATIENT
  Sex: Male

DRUGS (3)
  1. HYDROMORPHONE HYDROCHLORIDE. [Suspect]
     Active Substance: HYDROMORPHONE HYDROCHLORIDE
     Indication: POSTOPERATIVE ANALGESIA
     Dosage: 15MG/HOUR, 15 MG, FREQ: 1 HOUR; INTERVAL: 1
     Route: 041
  2. HYDROMORPHONE HYDROCHLORIDE. [Suspect]
     Active Substance: HYDROMORPHONE HYDROCHLORIDE
     Dosage: DEMAND DOSES OF 0.3MG, LOCKOUT INTERVAL OF 10 MINUTES
     Route: 041
  3. HYDROMORPHONE HYDROCHLORIDE. [Suspect]
     Active Substance: HYDROMORPHONE HYDROCHLORIDE
     Dosage: 1.5 MG, FREQ: 1 HOUR; INTERVAL: 1
     Route: 041

REACTIONS (4)
  - Overdose [Recovered/Resolved]
  - Circumstance or information capable of leading to device use error [Recovered/Resolved]
  - Unresponsive to stimuli [Recovered/Resolved]
  - Device computer issue [Recovered/Resolved]
